FAERS Safety Report 20669052 (Version 1)
Quarter: 2022Q2

REPORT INFORMATION
  Report Type: Spontaneous
  Country: FR (occurrence: FR)
  Receive Date: 20220404
  Receipt Date: 20220404
  Transmission Date: 20220721
  Serious: Yes (Hospitalization)
  Sender: FDA-Public Use
  Company Number: None

PATIENT
  Age: 79 Year
  Sex: Male
  Weight: 80 kg

DRUGS (7)
  1. TAMSULOSIN [Interacting]
     Active Substance: TAMSULOSIN
     Indication: Benign prostatic hyperplasia
     Dosage: THERAPY START DATE ASKU,0.4MG, FREQUENCY TIME 1DAYS
     Route: 048
     Dates: end: 20220206
  2. HYDROCHLOROTHIAZIDE\IRBESARTAN [Interacting]
     Active Substance: HYDROCHLOROTHIAZIDE\IRBESARTAN
     Indication: Hypertension
     Dosage: STRENGTH:300MG/12.5MG, 1DF,FREQUENCY TIME 1DAYS,THERAPY START DATE ASKU
     Route: 048
     Dates: end: 20220210
  3. LANSOPRAZOLE [Concomitant]
     Active Substance: LANSOPRAZOLE
     Dosage: 15MG, THERAPY START DATE ASKU, FREQUENCY TIME 1DAYS
     Route: 048
  4. GLICLAZIDE [Concomitant]
     Active Substance: GLICLAZIDE
     Dosage: DIAMICRON 60 MG, MODIFIED-RELEASE SCORED TABLET,FREQUENCY TIME 1DAYS,THERAPY START DATE ASKU, UNITDO
     Route: 048
  5. PRAVASTATIN SODIUM [Concomitant]
     Active Substance: PRAVASTATIN SODIUM
     Dosage: THERAPY START DATE ASKU
     Route: 048
  6. HERBALS\SAW PALMETTO [Concomitant]
     Active Substance: HERBALS\SAW PALMETTO
     Dosage: THERAPY START DATE ASKU
     Route: 048
     Dates: end: 20220204
  7. JANUMET [Concomitant]
     Active Substance: METFORMIN HYDROCHLORIDE\SITAGLIPTIN PHOSPHATE
     Dosage: STRENGTH:50 MG/1000 MG,2DF, FREQUENCY TIME 1DAYS, THERAPY START DATE ASKU
     Route: 048

REACTIONS (3)
  - Hypotension [Recovered/Resolved]
  - Orthostatic hypotension [Recovering/Resolving]
  - Drug interaction [Unknown]

NARRATIVE: CASE EVENT DATE: 20220201
